FAERS Safety Report 7724385-3 (Version None)
Quarter: 2011Q3

REPORT INFORMATION
  Report Type: 
  Country: None (occurrence: None)
  Receive Date: 20110901
  Receipt Date: 20110823
  Transmission Date: 20111222
  Serious: Yes (Other)
  Sender: FDA-Public Use
  Company Number: US-ASTRAZENECA-2011SE51265

PATIENT
  Age: 60 Year
  Sex: Female

DRUGS (3)
  1. ZOMIG [Suspect]
     Route: 048
  2. CRESTOR [Suspect]
     Route: 048
  3. SEROQUEL XR [Suspect]
     Route: 048

REACTIONS (1)
  - BLINDNESS [None]
